FAERS Safety Report 8838466 (Version 1)
Quarter: 2012Q4

REPORT INFORMATION
  Report Type: 
  Country: US (occurrence: US)
  Receive Date: 20121012
  Receipt Date: 20121012
  Transmission Date: 20130627
  Serious: Yes (Other)
  Sender: FDA-Public Use
  Company Number: CHPA2012US021307

PATIENT
  Age: 2 Year
  Sex: Female
  Weight: 14.51 kg

DRUGS (1)
  1. ACETAMINOPHEN [Suspect]
     Dosage: 1/2 BOTTLE, ONCE/SINGLE
     Route: 048
     Dates: start: 20121005, end: 20121005

REACTIONS (3)
  - Accidental overdose [Unknown]
  - Accidental exposure to product by child [Unknown]
  - No adverse event [Unknown]
